FAERS Safety Report 6154493-2 (Version None)
Quarter: 2009Q2

REPORT INFORMATION
  Report Type: 
  Country: None (occurrence: None)
  Receive Date: 20090414
  Receipt Date: 20090211
  Transmission Date: 20091009
  Serious: Yes (Other)
  Sender: FDA-Public Use
  Company Number: GR-AMGEN-US296881

PATIENT
  Sex: Female
  Weight: 72 kg

DRUGS (1)
  1. ENBREL [Suspect]
     Indication: RHEUMATOID ARTHRITIS
     Route: 058
     Dates: start: 20080523, end: 20080527

REACTIONS (1)
  - COMPLEX REGIONAL PAIN SYNDROME [None]
